FAERS Safety Report 6224535-4 (Version None)
Quarter: 2009Q2

REPORT INFORMATION
  Report Type: 
  Country: None (occurrence: None)
  Receive Date: 20090612
  Receipt Date: 20090501
  Transmission Date: 20091009
  Serious: No
  Sender: FDA-Public Use
  Company Number: US-ABBOTT-09P-163-0563932-00

PATIENT
  Sex: Female
  Weight: 87.168 kg

DRUGS (2)
  1. HUMIRA [Suspect]
     Indication: DRUG USE FOR UNKNOWN INDICATION
     Dates: start: 20070810, end: 20090326
  2. HUMIRA [Suspect]
     Dosage: HUMIRA PEN

REACTIONS (11)
  - ASTHENIA [None]
  - CHILLS [None]
  - DEPRESSION [None]
  - FATIGUE [None]
  - GASTRIC INFECTION [None]
  - GASTROENTERITIS VIRAL [None]
  - HEADACHE [None]
  - INFLUENZA LIKE ILLNESS [None]
  - MALAISE [None]
  - PYREXIA [None]
  - SOMNOLENCE [None]
